FAERS Safety Report 5414798-7 (Version None)
Quarter: 2007Q3

REPORT INFORMATION
  Report Type: 
  Country: None (occurrence: None)
  Receive Date: 20070813
  Receipt Date: 20070803
  Transmission Date: 20080115
  Serious: Yes (Death, Other)
  Sender: FDA-Public Use
  Company Number: 2007SP015848

PATIENT
  Age: 79 Year
  Sex: Female
  Weight: 71.5 kg

DRUGS (3)
  1. TEMOZOLOMIDE [Suspect]
     Indication: GLIOBLASTOMA MULTIFORME
     Dosage: 75 MG/M2; QD; PO; 150 MG/M2; QD; PO; 200 MG/M2; QD; PO
     Route: 048
     Dates: start: 20061108, end: 20061201
  2. TEMOZOLOMIDE [Suspect]
     Indication: GLIOBLASTOMA MULTIFORME
     Dosage: 75 MG/M2; QD; PO; 150 MG/M2; QD; PO; 200 MG/M2; QD; PO
     Route: 048
     Dates: start: 20070217, end: 20070221
  3. TEMOZOLOMIDE [Suspect]
     Indication: GLIOBLASTOMA MULTIFORME
     Dosage: 75 MG/M2; QD; PO; 150 MG/M2; QD; PO; 200 MG/M2; QD; PO
     Route: 048
     Dates: start: 20070120

REACTIONS (3)
  - ATRIAL FIBRILLATION [None]
  - PANCYTOPENIA [None]
  - SICK SINUS SYNDROME [None]
